FAERS Safety Report 24551908 (Version 1)
Quarter: 2024Q4

REPORT INFORMATION
  Report Type: Spontaneous
  Country: JP (occurrence: JP)
  Receive Date: 20241026
  Receipt Date: 20241026
  Transmission Date: 20250115
  Serious: Yes (Hospitalization, Other)
  Sender: ROCHE
  Company Number: JP-CHUGAI-2024036918AA

PATIENT
  Age: 77 Year
  Sex: Female

DRUGS (1)
  1. KADCYLA [Suspect]
     Active Substance: ADO-TRASTUZUMAB EMTANSINE
     Indication: Breast cancer
     Dosage: UNK
     Route: 042

REACTIONS (3)
  - Henoch-Schonlein purpura [Unknown]
  - Mesangioproliferative glomerulonephritis [Unknown]
  - Platelet count decreased [Recovered/Resolved]
